FAERS Safety Report 23601903 (Version 1)
Quarter: 2024Q1

REPORT INFORMATION
  Report Type: Spontaneous
  Country: US (occurrence: None)
  Receive Date: 20240306
  Receipt Date: 20240306
  Transmission Date: 20240410
  Serious: Yes (Hospitalization, Disabling, Other)
  Sender: FDA-Public Use
  Company Number: None

PATIENT
  Age: 65 Year
  Sex: Female
  Weight: 69.3 kg

DRUGS (9)
  1. WEGOVY [Suspect]
     Active Substance: SEMAGLUTIDE
     Indication: Weight decreased
     Dosage: OTHER QUANTITY : 1 INJECTION(S);?OTHER FREQUENCY : WEEKLY;?OTHER ROUTE : INJECTED IN THE ABDOMINAL A
     Route: 050
     Dates: start: 20230901, end: 20231007
  2. METOPROLOL [Concomitant]
  3. LOSARTAN [Concomitant]
  4. GABAPENTIN [Concomitant]
  5. rosivastating [Concomitant]
  6. ezetamibe [Concomitant]
  7. FUROSEMIDE\POTASSIUM CHLORIDE [Concomitant]
     Active Substance: FUROSEMIDE\POTASSIUM CHLORIDE
  8. HYDROCHLOOROTHIAZIDE [Concomitant]
  9. cloninine [Concomitant]

REACTIONS (2)
  - Neuralgia [None]
  - Therapy interrupted [None]

NARRATIVE: CASE EVENT DATE: 20231001
